FAERS Safety Report 20090548 (Version 1)
Quarter: 2021Q4

REPORT INFORMATION
  Report Type: Spontaneous
  Country: CN (occurrence: None)
  Receive Date: 20211119
  Receipt Date: 20211119
  Transmission Date: 20220303
  Serious: Yes (Other)
  Sender: FDA-Public Use
  Company Number: 2021A809461

PATIENT
  Age: 21185 Day
  Sex: Male
  Weight: 81 kg

DRUGS (4)
  1. DAPAGLIFLOZIN [Suspect]
     Active Substance: DAPAGLIFLOZIN
     Indication: Diabetes mellitus
     Route: 048
     Dates: start: 20210501, end: 20211110
  2. METFORMIN HYDROCHLORIDE [Concomitant]
     Active Substance: METFORMIN HYDROCHLORIDE
     Indication: Diabetes mellitus
     Route: 048
     Dates: start: 20210501, end: 20211110
  3. ACARBOSE [Concomitant]
     Active Substance: ACARBOSE
     Indication: Diabetes mellitus
     Dates: start: 20210501, end: 20211110
  4. INSULIN NOS [Concomitant]
     Active Substance: INSULIN NOS

REACTIONS (2)
  - Ketosis [Recovering/Resolving]
  - Glucose urine present [Unknown]

NARRATIVE: CASE EVENT DATE: 20211109
